FAERS Safety Report 6231309-7 (Version None)
Quarter: 2009Q2

REPORT INFORMATION
  Report Type: 
  Country: None (occurrence: None)
  Receive Date: 20090616
  Receipt Date: 20090604
  Transmission Date: 20091009
  Serious: Yes (Other)
  Sender: FDA-Public Use
  Company Number: US-PFIZER INC-2009225297

PATIENT
  Sex: Female
  Weight: 58.967 kg

DRUGS (5)
  1. XALATAN [Suspect]
     Indication: EYE PAIN
     Dosage: 1 GTT, 1X/DAY
     Dates: start: 20040101
  2. XALATAN [Suspect]
     Indication: INTRAOCULAR PRESSURE INCREASED
  3. LISINOPRIL [Suspect]
     Indication: HYPERTENSION
  4. LEVOTHYROXINE [Concomitant]
     Indication: THYROID DISORDER
     Dosage: UNK
  5. LORAZEPAM [Concomitant]
     Indication: TEMPOROMANDIBULAR JOINT SYNDROME
     Dosage: UNK

REACTIONS (7)
  - COUGH [None]
  - DRY EYE [None]
  - EYE IRRITATION [None]
  - EYE PAIN [None]
  - GLAUCOMA [None]
  - HYPERSENSITIVITY [None]
  - THROAT IRRITATION [None]
